FAERS Safety Report 8224188-X (Version None)
Quarter: 2012Q1

REPORT INFORMATION
  Report Type: 
  Country: None (occurrence: None)
  Receive Date: 20120321
  Receipt Date: 20120313
  Transmission Date: 20120608
  Serious: Yes (Other)
  Sender: FDA-Public Use
  Company Number: GR-BRISTOL-MYERS SQUIBB COMPANY-16424137

PATIENT
  Age: 75 Year
  Sex: Female

DRUGS (7)
  1. ONGLYZA [Suspect]
     Indication: TYPE 2 DIABETES MELLITUS
     Route: 048
     Dates: start: 20120101, end: 20120101
  2. SALOSPIR [Concomitant]
     Dosage: FROM YEARS UNTIL TO DATE
  3. ZESTRIL [Concomitant]
     Dosage: FROM YEARS UNTIL TO DATE
  4. GLUCOPHAGE [Suspect]
     Indication: TYPE 2 DIABETES MELLITUS
     Dosage: STARTED SOME YEARS AGO TO TILL DT
     Route: 048
  5. METFORMIN HYDROCHLORIDE [Suspect]
     Dosage: EUCREAS F.C TAB
     Dates: start: 20120101, end: 20120101
  6. LIPITOR [Concomitant]
     Dosage: FROM YEARS UNTIL TO DATE
  7. LERCANIDIPINE [Concomitant]
     Dosage: FROM YEARS UNTIL TO DATE

REACTIONS (2)
  - ANGIOEDEMA [None]
  - PRURITUS [None]
